FAERS Safety Report 9781177 (Version 2)
Quarter: 2014Q1

REPORT INFORMATION
  Report Type: Spontaneous
  Country: GB (occurrence: None)
  Receive Date: 20131220
  Receipt Date: 20140218
  Transmission Date: 20141002
  Serious: Yes (Other)
  Sender: FDA-Public Use
  Company Number: AUR-APL-2013-10541

PATIENT
  Sex: Male

DRUGS (1)
  1. CLOPIDOGREL (CLOPIDOGREL) [Suspect]
     Indication: ATRIAL FIBRILLATION

REACTIONS (5)
  - Cardiac failure [None]
  - Hypertension [None]
  - Drug dose omission [None]
  - Myocardial infarction [None]
  - Treatment noncompliance [None]
